FAERS Safety Report 10129892 (Version 1)
Quarter: 2014Q2

REPORT INFORMATION
  Report Type: Spontaneous
  Country: JP (occurrence: None)
  Receive Date: 20140424
  Receipt Date: 20140424
  Transmission Date: 20141212
  Serious: Yes (Death, Life-Threatening)
  Sender: FDA-Public Use
  Company Number: 2014P1002924

PATIENT
  Age: 51 Year
  Sex: Male
  Weight: 48 kg

DRUGS (7)
  1. RISPERIDONE [Suspect]
     Dates: start: 20130131, end: 20130214
  2. VALPROIC ACID [Suspect]
     Dates: start: 20130131, end: 20130214
  3. LITHIUM CARBONATE [Suspect]
     Dates: start: 1996
  4. ZOTEPINE [Suspect]
     Dates: start: 1996, end: 20130214
  5. FLUPHENAZINE DECANOATE [Suspect]
     Route: 030
     Dates: start: 1996, end: 20130214
  6. HALOPERIDOL [Suspect]
     Dates: start: 1996
  7. BIPERIDEN [Suspect]
     Dates: start: 1996

REACTIONS (4)
  - Neuroleptic malignant syndrome [None]
  - Respiratory failure [None]
  - Dysphagia [None]
  - Salivary hypersecretion [None]
